FAERS Safety Report 16625380 (Version 7)
Quarter: 2021Q1

REPORT INFORMATION
  Report Type: Spontaneous
  Country: DE (occurrence: DE)
  Receive Date: 20190724
  Receipt Date: 20210201
  Transmission Date: 20210419
  Serious: Yes (Death, Life-Threatening, Hospitalization, Other)
  Sender: FDA-Public Use
  Company Number: PHHY2019DE170361

PATIENT
  Sex: Male
  Weight: 80 kg

DRUGS (6)
  1. IMBRUVICA [Suspect]
     Active Substance: IBRUTINIB
     Dosage: 280 MG
     Route: 048
     Dates: start: 20180423
  2. ASPIRIN. [Suspect]
     Active Substance: ASPIRIN
     Indication: ATRIAL FIBRILLATION
     Dosage: 100 MG, UNK
     Route: 048
  3. IMBRUVICA [Suspect]
     Active Substance: IBRUTINIB
     Indication: CHRONIC LYMPHOCYTIC LEUKAEMIA
     Dosage: 420 MG, UNK
     Route: 048
     Dates: start: 20170306, end: 20170428
  4. DICLOFENAC [Suspect]
     Active Substance: DICLOFENAC
     Indication: GOUT
     Dosage: 150 MG, UNK
     Route: 065
  5. ADENURIC [Concomitant]
     Active Substance: FEBUXOSTAT
     Indication: GOUT
     Dosage: UNK
     Route: 048
  6. FASTURTEC [Concomitant]
     Active Substance: RASBURICASE
     Indication: GOUT
     Dosage: UNK
     Route: 042

REACTIONS (6)
  - Congestive cardiomyopathy [Fatal]
  - General physical health deterioration [Fatal]
  - Haemorrhage [Recovered/Resolved]
  - Coronary artery disease [Fatal]
  - Depression [Unknown]
  - Cardiac disorder [Fatal]

NARRATIVE: CASE EVENT DATE: 20170424
